FAERS Safety Report 10249002 (Version 1)
Quarter: 2014Q2

REPORT INFORMATION
  Report Type: Spontaneous
  Country: JP (occurrence: None)
  Receive Date: 20140618
  Receipt Date: 20140618
  Transmission Date: 20141212
  Serious: Yes (Hospitalization)
  Sender: FDA-Public Use
  Company Number: SYM-2014-21719

PATIENT
  Age: 50 Year
  Sex: Male

DRUGS (5)
  1. SELEGILINE [Suspect]
     Indication: DEPRESSION
     Dates: start: 200505
  2. TRAZODONE (TRAZODONE) [Suspect]
     Indication: INTENTIONAL OVERDOSE
  3. CARBAMAZEPINE (CARBAMAZEPINE) [Suspect]
     Indication: INTENTIONAL OVERDOSE
  4. VALPROATE SODIUM [Suspect]
     Indication: INTENTIONAL OVERDOSE
  5. NITRAZEPAM [Suspect]
     Indication: INTENTIONAL OVERDOSE

REACTIONS (11)
  - Suicide attempt [None]
  - Coma [None]
  - Pneumonia aspiration [None]
  - Confusional state [None]
  - Myoclonus [None]
  - Hyperhidrosis [None]
  - Respiratory failure [None]
  - Convulsion [None]
  - Hallucination, visual [None]
  - Intentional overdose [None]
  - Hypertension [None]
